FAERS Safety Report 25942316 (Version 2)
Quarter: 2025Q4

REPORT INFORMATION
  Report Type: Spontaneous
  Country: JP (occurrence: JP)
  Receive Date: 20251021
  Receipt Date: 20251105
  Transmission Date: 20260117
  Serious: Yes (Other)
  Sender: NOVARTIS
  Company Number: JP-002147023-NVSJ2025JP010250

PATIENT

DRUGS (1)
  1. SCEMBLIX [Suspect]
     Active Substance: ASCIMINIB HYDROCHLORIDE
     Indication: Product used for unknown indication
     Dosage: UNK, BID, TOOK THE TABLETS 1 HOUR BEFORE AND AFTER MEAL
     Route: 048

REACTIONS (1)
  - Renal impairment [Unknown]
